FAERS Safety Report 8224448-2 (Version None)
Quarter: 2012Q1

REPORT INFORMATION
  Report Type: 
  Country: None (occurrence: None)
  Receive Date: 20120320
  Receipt Date: 20120320
  Transmission Date: 20120608
  Serious: Yes (Death, Hospitalization)
  Sender: FDA-Public Use
  Company Number: None

PATIENT
  Sex: Male
  Weight: 91.6 kg

DRUGS (21)
  1. CYTARABINE [Suspect]
     Dosage: 1470 MG
     Dates: end: 20120219
  2. ACYCLOVIR [Concomitant]
  3. CALCIUM GLUCONATE [Concomitant]
  4. ACETAMINOPHEN [Concomitant]
  5. CEFEPIME [Concomitant]
  6. LEVOPHED [Concomitant]
  7. MICAFUNGIN SODIUM [Concomitant]
  8. POTASSIUM CHLORIDE [Concomitant]
  9. PROPOFOL [Concomitant]
  10. ATROPINE [Concomitant]
  11. FENTANYL [Concomitant]
  12. OXYDONE [Concomitant]
  13. ZOFRAN [Concomitant]
  14. ALBUTEROL [Concomitant]
  15. MAGNESIUM SULFATE [Concomitant]
  16. DAUNORUBICIN HCL [Suspect]
     Dosage: 375 MG
     Dates: end: 20120215
  17. DILTIAZEM HCL [Concomitant]
  18. PROTONIX [Concomitant]
  19. HEPARIN [Concomitant]
  20. SODIUM PHOSPHATE [Concomitant]
  21. MORPHINE [Concomitant]

REACTIONS (2)
  - RENAL FAILURE [None]
  - DIALYSIS [None]
